FAERS Safety Report 4444249-0 (Version None)
Quarter: 2004Q3

REPORT INFORMATION
  Report Type: 
  Country: None (occurrence: None)
  Receive Date: 20040812
  Receipt Date: 20031013
  Transmission Date: 20050211
  Serious: Yes (Hospitalization)
  Sender: FDA-Public Use
  Company Number: USA031049559

PATIENT
  Age: 44 Year
  Sex: Male
  Weight: 66 kg

DRUGS (6)
  1. HUMULIN-HUMAN  INSULIN (RDNA)  UNKNOWN FORMULATION (HU [Suspect]
  2. ILETIN I [Suspect]
     Indication: DIABETES MELLITUS
     Dosage: 25 U/DAY
     Dates: start: 19610101
  3. HUMULIN N [Suspect]
     Indication: DIABETES MELLITUS
  4. HUMULIN 70/30 [Suspect]
     Indication: DIABETES MELLITUS
     Dates: start: 20000101, end: 20000101
  5. HUMALOG [Suspect]
     Indication: DIABETES MELLITUS
  6. REGULAR ILETIN II (PORK) [Suspect]
     Indication: DIABETES MELLITUS

REACTIONS (13)
  - ADVERSE DRUG REACTION [None]
  - AMNESIA [None]
  - BLOOD GLUCOSE INCREASED [None]
  - DIFFICULTY IN WALKING [None]
  - DRUG HYPERSENSITIVITY [None]
  - DYSPHAGIA [None]
  - HYPOAESTHESIA ORAL [None]
  - INJECTION SITE WARMTH [None]
  - MALAISE [None]
  - MUSCLE CRAMP [None]
  - NASOPHARYNGITIS [None]
  - OPISTHOTONUS [None]
  - PHARYNGITIS STREPTOCOCCAL [None]
